FAERS Safety Report 13216329 (Version 1)
Quarter: 2017Q1

REPORT INFORMATION
  Report Type: Spontaneous
  Country: US (occurrence: US)
  Receive Date: 20170210
  Receipt Date: 20170210
  Transmission Date: 20170428
  Serious: No
  Sender: FDA-Public Use
  Company Number: US-ENDO PHARMACEUTICALS INC-2016-005871

PATIENT
  Age: 53 Year
  Sex: Male
  Weight: 78.45 kg

DRUGS (8)
  1. PERPHENAZINE TABLETS 4MG [Suspect]
     Active Substance: PERPHENAZINE
     Indication: BIPOLAR DISORDER
     Dosage: 0.5 DF, QHS
     Route: 065
     Dates: start: 20160912, end: 20160918
  2. METFORMIN [Concomitant]
     Active Substance: METFORMIN HYDROCHLORIDE
     Indication: DIABETES MELLITUS
     Dosage: 1 DF, DAILY AFTER MEALS
     Route: 065
     Dates: start: 2005
  3. PERPHENAZINE TABLETS 4MG [Suspect]
     Active Substance: PERPHENAZINE
     Dosage: 1 DF, QHS
     Route: 065
     Dates: start: 20160919
  4. GLIPIZIDE. [Concomitant]
     Active Substance: GLIPIZIDE
     Indication: DIABETES MELLITUS
     Dosage: 2 DF, BID
     Route: 065
  5. INVOKANA [Concomitant]
     Active Substance: CANAGLIFLOZIN
     Indication: DIABETES MELLITUS
     Dosage: 300 MG, DAILY
     Route: 065
     Dates: start: 20160426
  6. CRESTOR [Concomitant]
     Active Substance: ROSUVASTATIN CALCIUM
     Indication: BLOOD CHOLESTEROL ABNORMAL
     Dosage: 400 MG, DAILY
     Route: 065
  7. GABITRIL [Concomitant]
     Active Substance: TIAGABINE HYDROCHLORIDE
     Indication: AFFECTIVE DISORDER
     Dosage: 1 DF, BID
     Route: 065
  8. CITALOPRAM [Concomitant]
     Active Substance: CITALOPRAM HYDROBROMIDE
     Indication: DEPRESSION
     Dosage: 40 MG, DAILY IN THE MORNING
     Dates: start: 1998

REACTIONS (4)
  - Agitation [Not Recovered/Not Resolved]
  - Heart rate increased [Not Recovered/Not Resolved]
  - Off label use [Unknown]
  - Insomnia [Not Recovered/Not Resolved]

NARRATIVE: CASE EVENT DATE: 20160912
